FAERS Safety Report 8816348 (Version 1)
Quarter: 2012Q4

REPORT INFORMATION
  Report Type: Spontaneous
  Country: US (occurrence: None)
  Receive Date: 20120928
  Receipt Date: 20120928
  Transmission Date: 20130627
  Serious: Yes (Other)
  Sender: FDA-Public Use
  Company Number: None

PATIENT
  Sex: Female
  Weight: 95.26 kg

DRUGS (1)
  1. GABAPENTIN [Suspect]
     Indication: TRIGEMINAL NEURALGIA
     Dosage: 300mg 2X dly oral
     Route: 048
     Dates: start: 201206, end: 201208

REACTIONS (3)
  - Facial pain [None]
  - Drug ineffective [None]
  - Condition aggravated [None]
